FAERS Safety Report 16077104 (Version 1)
Quarter: 2019Q2

REPORT INFORMATION
  Report Type: Spontaneous
  Country: US (occurrence: US)
  Receive Date: 20190314
  Receipt Date: 20190314
  Transmission Date: 20190711
  Serious: No
  Sender: FDA-Public Use
  Company Number: None

PATIENT
  Age: 24 Year
  Sex: Female
  Weight: 58.5 kg

DRUGS (1)
  1. EMGALITY [Suspect]
     Active Substance: GALCANEZUMAB-GNLM
     Indication: MIGRAINE
     Route: 058

REACTIONS (5)
  - Injection site swelling [None]
  - Injection site erythema [None]
  - Injection site pruritus [None]
  - Arthralgia [None]
  - Injection site pain [None]
